FAERS Safety Report 20794330 (Version 2)
Quarter: 2022Q2

REPORT INFORMATION
  Report Type: Spontaneous
  Country: US (occurrence: US)
  Receive Date: 20220506
  Receipt Date: 20220511
  Transmission Date: 20220720
  Serious: Yes (Other)
  Sender: FDA-Public Use
  Company Number: US-SA-2022SA146995

PATIENT
  Age: 46 Year
  Sex: Female

DRUGS (6)
  1. DOCETAXEL [Suspect]
     Active Substance: DOCETAXEL
     Indication: Small intestine leiomyosarcoma
  2. GEMCITABINE [Concomitant]
     Active Substance: GEMCITABINE
     Indication: Small intestine leiomyosarcoma
  3. OLARATUMAB [Concomitant]
     Active Substance: OLARATUMAB
     Indication: Small intestine leiomyosarcoma
  4. DOXORUBICIN [Concomitant]
     Active Substance: DOXORUBICIN
     Indication: Small intestine leiomyosarcoma
  5. PAZOPANIB [Concomitant]
     Active Substance: PAZOPANIB
     Indication: Small intestine leiomyosarcoma
  6. TRABECTEDIN [Concomitant]
     Active Substance: TRABECTEDIN
     Indication: Small intestine leiomyosarcoma

REACTIONS (3)
  - Multiple sclerosis [Recovered/Resolved]
  - Oedema peripheral [Recovered/Resolved]
  - Musculoskeletal stiffness [Recovered/Resolved]

NARRATIVE: CASE EVENT DATE: 20190101
